FAERS Safety Report 5618485-1 (Version None)
Quarter: 2008Q1

REPORT INFORMATION
  Report Type: 
  Country: None (occurrence: None)
  Receive Date: 20080207
  Receipt Date: 20080206
  Transmission Date: 20080703
  Serious: Yes (Other)
  Sender: FDA-Public Use
  Company Number: B0504903A

PATIENT
  Age: 65 Year
  Sex: Male

DRUGS (5)
  1. COMBIVIR [Suspect]
     Indication: HIV INFECTION
     Route: 048
     Dates: start: 20060901, end: 20071201
  2. EPIVIR [Suspect]
     Indication: HIV INFECTION
     Route: 048
     Dates: end: 20060901
  3. ZERIT [Suspect]
     Indication: HIV INFECTION
     Route: 048
  4. VIRAMUNE [Suspect]
     Indication: HIV INFECTION
     Route: 048
  5. VIDEX [Suspect]
     Indication: HIV INFECTION
     Route: 048
     Dates: start: 20071201, end: 20080101

REACTIONS (3)
  - ECZEMA [None]
  - LIPODYSTROPHY ACQUIRED [None]
  - PARAESTHESIA [None]
